FAERS Safety Report 15228054 (Version 1)
Quarter: 2018Q3

REPORT INFORMATION
  Report Type: Spontaneous
  Country: US (occurrence: US)
  Receive Date: 20180801
  Receipt Date: 20180801
  Transmission Date: 20181010
  Serious: No
  Sender: FDA-Public Use
  Company Number: US-PFIZER INC-2018308967

PATIENT
  Sex: Female

DRUGS (2)
  1. ADRIAMYCIN [Suspect]
     Active Substance: DOXORUBICIN HYDROCHLORIDE
     Dosage: UNK
     Dates: start: 2002
  2. CYTOXAN [Suspect]
     Active Substance: CYCLOPHOSPHAMIDE
     Dosage: UNK
     Dates: start: 2002

REACTIONS (1)
  - White blood cell count decreased [Unknown]
